FAERS Safety Report 5208763-2 (Version None)
Quarter: 2007Q1

REPORT INFORMATION
  Report Type: 
  Country: None (occurrence: None)
  Receive Date: 20070116
  Receipt Date: 20070110
  Transmission Date: 20070707
  Serious: Yes (Death, Other)
  Sender: FDA-Public Use
  Company Number: PHBS2007DE00815

PATIENT
  Age: 8 Year
  Sex: Male

DRUGS (8)
  1. CYCLOSPORINE [Suspect]
     Indication: STEM CELL TRANSPLANT
  2. METHOTREXATE [Concomitant]
     Dosage: DAY 1, 3, 6
  3. ETOPOSIDE [Concomitant]
     Dosage: 40 MG/KG/DAY
  4. ANTITHYMOCYTE IMMUNOGLOBULIN [Concomitant]
     Dosage: 30 MG/KG/DAY
  5. IRRADIATION [Concomitant]
     Dosage: 12 GY
  6. PREDNISOLONE [Concomitant]
     Indication: GRAFT VERSUS HOST DISEASE
     Dosage: 2 MG/KG/DAY
  7. GANCICLOVIR [Concomitant]
     Indication: CYTOMEGALOVIRUS OESOPHAGITIS
  8. IMMUNOGLOBULIN CYTOMEGALOVIRUS [Concomitant]

REACTIONS (17)
  - BENCE JONES PROTEINURIA [None]
  - CARDIAC FAILURE [None]
  - CYTOMEGALOVIRUS OESOPHAGITIS [None]
  - DIALYSIS [None]
  - DIARRHOEA [None]
  - EPSTEIN-BARR VIRUS INFECTION [None]
  - GRAFT VERSUS HOST DISEASE [None]
  - HAEMATEMESIS [None]
  - HEPATOSPLENOMEGALY [None]
  - INTUBATION [None]
  - INTUSSUSCEPTION [None]
  - LYMPHOPROLIFERATIVE DISORDER [None]
  - NEUTROPENIA [None]
  - PLASMA CELLS INCREASED [None]
  - PYREXIA [None]
  - RENAL FAILURE [None]
  - RESPIRATORY FAILURE [None]
